FAERS Safety Report 9041013 (Version 1)
Quarter: 2013Q1

REPORT INFORMATION
  Report Type: Spontaneous
  Country: US (occurrence: None)
  Receive Date: 20130123
  Receipt Date: 20130123
  Transmission Date: 20140127
  Serious: Yes (Other)
  Sender: FDA-Public Use
  Company Number: None

PATIENT
  Sex: Female
  Weight: 61.24 kg

DRUGS (1)
  1. ATORVASTATIN [Suspect]

REACTIONS (4)
  - Paraesthesia [None]
  - Myalgia [None]
  - Abdominal pain upper [None]
  - Product substitution issue [None]
